FAERS Safety Report 5137011-7 (Version None)
Quarter: 2006Q4

REPORT INFORMATION
  Report Type: 
  Country: None (occurrence: None)
  Receive Date: 20061030
  Receipt Date: 20061024
  Transmission Date: 20070319
  Serious: Yes (Other)
  Sender: FDA-Public Use
  Company Number: AU-BRISTOL-MYERS SQUIBB COMPANY-13556451

PATIENT
  Age: 99 Year
  Sex: Male

DRUGS (12)
  1. KARVEA [Suspect]
     Indication: ESSENTIAL HYPERTENSION
  2. COUMADIN [Suspect]
     Indication: ARRHYTHMIA
  3. BENADRYL [Suspect]
     Indication: PAIN IN EXTREMITY
     Route: 048
  4. LEXAPRO [Suspect]
     Indication: DEPRESSION
     Route: 048
     Dates: start: 20050623, end: 20050628
  5. SOLGAR [Suspect]
     Dates: start: 20050623, end: 20050628
  6. LUCRIN [Concomitant]
     Indication: PROSTATE CANCER
  7. NORVASC [Concomitant]
     Indication: DEPRESSION
  8. ROCALTROL [Concomitant]
     Indication: BONE DISORDER
  9. XALATAN [Concomitant]
  10. AZOPT [Concomitant]
  11. PRED FORTE [Concomitant]
  12. ARATAC [Concomitant]
     Indication: ARRHYTHMIA

REACTIONS (2)
  - ANGIONEUROTIC OEDEMA [None]
  - PERIPHERAL ISCHAEMIA [None]
